FAERS Safety Report 7817158-4 (Version None)
Quarter: 2011Q4

REPORT INFORMATION
  Report Type: 
  Country: None (occurrence: None)
  Receive Date: 20111017
  Receipt Date: 20111017
  Transmission Date: 20120403
  Serious: Yes (Hospitalization)
  Sender: FDA-Public Use
  Company Number: None

PATIENT
  Age: 58 Year
  Sex: Female
  Weight: 95.254 kg

DRUGS (1)
  1. FLUCONAZOLE [Suspect]
     Dosage: I PILL DAILY
     Route: 048
     Dates: start: 20110911, end: 20110918

REACTIONS (4)
  - PAIN [None]
  - IMPAIRED WORK ABILITY [None]
  - BLOOD PRESSURE INCREASED [None]
  - EPISTAXIS [None]
